FAERS Safety Report 8880267 (Version 1)
Quarter: 2012Q4

REPORT INFORMATION
  Report Type: 
  Country: US (occurrence: US)
  Receive Date: 20121031
  Receipt Date: 20121031
  Transmission Date: 20130627
  Serious: Yes (Other)
  Sender: FDA-Public Use
  Company Number: CHPA2012US022450

PATIENT
  Age: 67 Year
  Sex: Female

DRUGS (3)
  1. EXCEDRIN EXTRA STRENGTH [Suspect]
     Indication: PAIN
     Dosage: 1 DF, PRN
     Route: 048
     Dates: end: 1995
  2. LOSARTAN [Concomitant]
     Dosage: Unk, Unk
  3. METOPROLOL [Concomitant]
     Dosage: Unk, Unk

REACTIONS (6)
  - Cerebrovascular accident [Recovered/Resolved]
  - Hypertension [Not Recovered/Not Resolved]
  - Corneal disorder [Recovered/Resolved]
  - Blood cholesterol increased [Not Recovered/Not Resolved]
  - Pain [Not Recovered/Not Resolved]
  - Underdose [Unknown]
